FAERS Safety Report 6367767-7 (Version None)
Quarter: 2009Q3

REPORT INFORMATION
  Report Type: 
  Country: None (occurrence: None)
  Receive Date: 20090921
  Receipt Date: 20090909
  Transmission Date: 20100115
  Serious: Yes (Hospitalization)
  Sender: FDA-Public Use
  Company Number: US-ELI_LILLY_AND_COMPANY-US200908002446

PATIENT
  Sex: Female
  Weight: 152.38 kg

DRUGS (18)
  1. CYMBALTA [Suspect]
     Indication: ANXIETY
     Dosage: 60 MG, 2/D
     Dates: end: 20090801
  2. CYMBALTA [Suspect]
     Dosage: 30 MG, UNK
     Dates: start: 20090803, end: 20090101
  3. CYMBALTA [Suspect]
     Dosage: 60 MG, UNK
     Dates: start: 20090101
  4. MILNACIPRAN [Concomitant]
     Dosage: 20 MG, UNKNOWN
     Dates: start: 20090702, end: 20090731
  5. IMITREX [Concomitant]
     Indication: HEADACHE
     Dosage: 100 MG, AS NEEDED
  6. PREVACID [Concomitant]
  7. DITROPAN /USA/ [Concomitant]
     Dosage: 5 MG, 2/D
  8. ZANAFLEX [Concomitant]
     Dosage: 4 MG, 3/D
  9. THYROID TAB [Concomitant]
  10. PERCOCET [Concomitant]
  11. LIDODERM [Concomitant]
  12. ALLEGRA [Concomitant]
  13. FIORICET [Concomitant]
  14. ZONEGRAN [Concomitant]
     Dosage: 100 MG, EACH MORNING
  15. ZONEGRAN [Concomitant]
     Dosage: 100 MG, EACH EVENING
  16. XANAX [Concomitant]
  17. FLONAX [Concomitant]
  18. REQUIP [Concomitant]

REACTIONS (29)
  - ALTERED STATE OF CONSCIOUSNESS [None]
  - ANXIETY [None]
  - BLOOD GLUCOSE INCREASED [None]
  - BLOOD PRESSURE INCREASED [None]
  - CHILLS [None]
  - COMPLEX PARTIAL SEIZURES [None]
  - CONDITION AGGRAVATED [None]
  - CONFUSIONAL STATE [None]
  - CONTUSION [None]
  - DELIRIUM [None]
  - DEPRESSION [None]
  - DIARRHOEA [None]
  - DISTURBANCE IN ATTENTION [None]
  - DRUG INEFFECTIVE [None]
  - FALL [None]
  - FEAR [None]
  - FEELING HOT [None]
  - HALLUCINATION [None]
  - HEADACHE [None]
  - HYPERHIDROSIS [None]
  - HYPERSENSITIVITY [None]
  - MUSCULAR WEAKNESS [None]
  - NAUSEA [None]
  - NIGHTMARE [None]
  - PALPITATIONS [None]
  - PYREXIA [None]
  - SYNCOPE [None]
  - VOMITING [None]
  - WHITE BLOOD CELL COUNT INCREASED [None]
